FAERS Safety Report 8813765 (Version 1)
Quarter: 2012Q4

REPORT INFORMATION
  Report Type: 
  Country: DE (occurrence: DE)
  Receive Date: 20120928
  Receipt Date: 20120928
  Transmission Date: 20130627
  Serious: Yes (Death, Life-Threatening, Hospitalization, Other)
  Sender: FDA-Public Use
  Company Number: DE-RANBAXY-2012RR-60442

PATIENT
  Age: 84 Year
  Sex: Male

DRUGS (1)
  1. METFORMIN [Suspect]
     Indication: TYPE 2 DIABETES MELLITUS
     Dosage: 2000 mg, daily
     Route: 048
     Dates: start: 20110803, end: 20110808

REACTIONS (4)
  - Lactic acidosis [Fatal]
  - Renal failure acute [Fatal]
  - Pneumonia [Fatal]
  - Sepsis [Fatal]
